FAERS Safety Report 14289774 (Version 1)
Quarter: 2017Q4

REPORT INFORMATION
  Report Type: Spontaneous
  Country: US (occurrence: None)
  Receive Date: 20171215
  Receipt Date: 20171215
  Transmission Date: 20180321
  Serious: No
  Sender: FDA-Public Use
  Company Number: None

PATIENT
  Sex: Female

DRUGS (8)
  1. ONDANSETRON [Concomitant]
     Active Substance: ONDANSETRON
  2. IBRANCE [Suspect]
     Active Substance: PALBOCICLIB
     Indication: NEOPLASM MALIGNANT
     Route: 048
     Dates: start: 20170407
  3. ATORVASTATIN [Concomitant]
     Active Substance: ATORVASTATIN
  4. GLIPIZIDE. [Concomitant]
     Active Substance: GLIPIZIDE
  5. FASLODEX [Concomitant]
     Active Substance: FULVESTRANT
  6. PROCHLORPERZINE [Concomitant]
     Active Substance: PROCHLORPERAZINE
  7. PROAIR HFA [Concomitant]
     Active Substance: ALBUTEROL SULFATE
  8. CLOPIDOGREL [Concomitant]
     Active Substance: CLOPIDOGREL BISULFATE

REACTIONS (1)
  - White blood cell count decreased [None]
